FAERS Safety Report 16128234 (Version 1)
Quarter: 2019Q1

REPORT INFORMATION
  Report Type: Spontaneous
  Country: FR (occurrence: FR)
  Receive Date: 20190328
  Receipt Date: 20190328
  Transmission Date: 20190418
  Serious: Yes (Other)
  Sender: FDA-Public Use
  Company Number: FR-TEVA-2019-FR-1029626

PATIENT
  Age: 64 Year
  Sex: Female
  Weight: 57 kg

DRUGS (1)
  1. COPAXONE [Suspect]
     Active Substance: GLATIRAMER ACETATE
     Indication: MULTIPLE SCLEROSIS
     Route: 058
     Dates: start: 201011

REACTIONS (7)
  - Tremor [Recovered/Resolved]
  - Tachycardia [Recovered/Resolved]
  - Burning sensation [Recovered/Resolved with Sequelae]
  - Hypoaesthesia [Recovering/Resolving]
  - Ecchymosis [Recovering/Resolving]
  - Choking [Recovered/Resolved]
  - Muscle spasms [Recovered/Resolved]

NARRATIVE: CASE EVENT DATE: 20181102
